FAERS Safety Report 17891540 (Version 2)
Quarter: 2020Q2

REPORT INFORMATION
  Report Type: Spontaneous
  Country: US (occurrence: US)
  Receive Date: 20200612
  Receipt Date: 20200630
  Transmission Date: 20200714
  Serious: Yes (Hospitalization, Other)
  Sender: FDA-Public Use
  Company Number: US-MALLINCKRODT-T202002688

PATIENT
  Sex: Female

DRUGS (2)
  1. H.P. ACTHAR [Suspect]
     Active Substance: CORTICOTROPIN
     Indication: SARCOIDOSIS
     Dosage: 1 MILLILITER (80 UNITS), TWICE A WEEK
     Route: 058
  2. H.P. ACTHAR [Suspect]
     Active Substance: CORTICOTROPIN
     Dosage: 1 MILLILITER (80 UNITS), TWICE A WEEK
     Route: 058

REACTIONS (3)
  - Renal stone removal [Unknown]
  - Urinary tract obstruction [Unknown]
  - Nephrolithiasis [Unknown]
